FAERS Safety Report 7469070-0 (Version None)
Quarter: 2011Q2

REPORT INFORMATION
  Report Type: 
  Country: None (occurrence: None)
  Receive Date: 20110429
  Receipt Date: 20090122
  Transmission Date: 20111010
  Serious: Yes (Other)
  Sender: FDA-Public Use
  Company Number: 2011US001208

PATIENT
  Age: 15 Year
  Sex: Female

DRUGS (1)
  1. PROTOPIC [Suspect]
     Indication: DERMATITIS ATOPIC
     Dosage: 0.1 %, TOPICAL
     Route: 061
     Dates: start: 20050101

REACTIONS (2)
  - NON-HODGKIN'S LYMPHOMA [None]
  - HODGKIN'S DISEASE LYMPHOCYTE PREDOMINANCE TYPE STAGE UNSPECIFIED [None]
